FAERS Safety Report 8601037 (Version 2)
Quarter: 2012Q4

REPORT INFORMATION
  Report Type: Report from Study
  Country: FR (occurrence: FR)
  Receive Date: 20120606
  Receipt Date: 20121029
  Transmission Date: 20130627
  Serious: Yes (Life-Threatening, Hospitalization)
  Sender: FDA-Public Use
  Company Number: FR-ROCHE-1075038

PATIENT
  Age: 65 Year
  Sex: Male

DRUGS (7)
  1. TENECTEPLASE [Suspect]
     Indication: ACUTE MYOCARDIAL INFARCTION
     Route: 065
  2. ENOXAPARIN [Suspect]
     Indication: ACUTE MYOCARDIAL INFARCTION
     Dosage: 100 mg bolus
     Route: 040
     Dates: start: 20111211, end: 20111211
  3. ENOXAPARIN [Suspect]
     Route: 058
     Dates: start: 20111211, end: 201112
  4. PRASUGREL [Suspect]
     Indication: ACUTE MYOCARDIAL INFARCTION
     Dosage: loading dose
     Route: 048
     Dates: start: 20111211
  5. ABCIXIMAB [Concomitant]
     Dosage: 25 mg/kg bolus, 10 mg bolus
     Route: 042
     Dates: start: 20111211, end: 20111211
  6. ABCIXIMAB [Concomitant]
     Dosage: 10 gamma/kg/min infusion.
     Route: 042
     Dates: start: 20111211, end: 201112
  7. CLOPIDOGREL [Concomitant]
     Route: 065

REACTIONS (2)
  - Haematemesis [Recovered/Resolved]
  - Ventricular fibrillation [Recovered/Resolved]
